FAERS Safety Report 9685458 (Version 1)
Quarter: 2013Q4

REPORT INFORMATION
  Report Type: Spontaneous
  Country: AT (occurrence: AT)
  Receive Date: 20131113
  Receipt Date: 20131113
  Transmission Date: 20140711
  Serious: Yes (Death)
  Sender: FDA-Public Use
  Company Number: AT-ASTELLAS-2013US011713

PATIENT
  Age: 49 Year
  Sex: Female

DRUGS (2)
  1. AMBISOME [Suspect]
     Indication: HEPATIC ECHINOCOCCIASIS
     Dosage: 3 MG/KG, UID/QD
     Route: 065
  2. ALBENDAZOLE [Concomitant]
     Indication: PRODUCT USED FOR UNKNOWN INDICATION
     Dosage: 400 MG, BID
     Route: 065

REACTIONS (1)
  - Drug ineffective for unapproved indication [Fatal]
